FAERS Safety Report 12160610 (Version 1)
Quarter: 2016Q1

REPORT INFORMATION
  Report Type: Spontaneous
  Country: CN (occurrence: CN)
  Receive Date: 20160308
  Receipt Date: 20160308
  Transmission Date: 20160526
  Serious: Yes (Other)
  Sender: FDA-Public Use
  Company Number: CN-ELI_LILLY_AND_COMPANY-CN201602009849

PATIENT
  Age: 9 Year
  Sex: Male

DRUGS (1)
  1. STRATTERA [Suspect]
     Active Substance: ATOMOXETINE HYDROCHLORIDE
     Indication: ATTENTION DEFICIT/HYPERACTIVITY DISORDER
     Dosage: 12.5 DF, QD
     Route: 048
     Dates: start: 20160122, end: 20160123

REACTIONS (3)
  - Tongue disorder [Recovered/Resolved]
  - Mental disorder [Recovered/Resolved]
  - Altered state of consciousness [Recovered/Resolved]
